FAERS Safety Report 5886263-4 (Version None)
Quarter: 2008Q3

REPORT INFORMATION
  Report Type: 
  Country: None (occurrence: None)
  Receive Date: 20080917
  Receipt Date: 20080908
  Transmission Date: 20090109
  Serious: Yes (Hospitalization, Congenital Anomaly)
  Sender: FDA-Public Use
  Company Number: A0626405A

PATIENT
  Sex: Female
  Weight: 3.4 kg

DRUGS (6)
  1. PAXIL CR [Suspect]
     Indication: DEPRESSION
     Dosage: 50MG PER DAY
     Dates: start: 20040817, end: 20050915
  2. PAXIL [Suspect]
     Indication: DEPRESSION
     Dosage: 40MG PER DAY
     Dates: start: 20050518, end: 20060101
  3. PAROXETINE HYDROCHLORIDE [Suspect]
     Indication: DRUG USE FOR UNKNOWN INDICATION
  4. VITAMIN TAB [Concomitant]
  5. IRON PILLS [Concomitant]
  6. PREVPAC [Concomitant]
     Dates: start: 20041101

REACTIONS (15)
  - ATRIAL SEPTAL DEFECT [None]
  - CARDIAC MURMUR [None]
  - CARDIOMEGALY [None]
  - CONGENITAL CARDIOVASCULAR ANOMALY [None]
  - CYANOSIS [None]
  - DRUG EXPOSURE DURING PREGNANCY [None]
  - ELECTROCARDIOGRAM ST SEGMENT ABNORMAL [None]
  - HEART DISEASE CONGENITAL [None]
  - LETHARGY [None]
  - PATENT DUCTUS ARTERIOSUS [None]
  - RESPIRATORY DEPTH DECREASED [None]
  - RIGHT ATRIAL DILATATION [None]
  - RIGHT VENTRICULAR HYPERTROPHY [None]
  - VENOUS THROMBOSIS [None]
  - VENTRICULAR SEPTAL DEFECT [None]
